FAERS Safety Report 8396514-2 (Version None)
Quarter: 2012Q1

REPORT INFORMATION
  Report Type: 
  Country: None (occurrence: None)
  Receive Date: 20120323
  Receipt Date: 20110330
  Transmission Date: 20120608
  Serious: Yes (Other)
  Sender: FDA-Public Use
  Company Number: 163-21880-11033678

PATIENT
  Age: 58 Year
  Sex: Male
  Weight: 124.7392 kg

DRUGS (7)
  1. VITAMIN B (VITAMIN B) (UNKNOWN) [Concomitant]
  2. LOVASTATIN (LOVASTATIN) (UNKNOWN) [Concomitant]
  3. AMBIEN [Concomitant]
  4. VITAMIN D (ERGOCALCIFEROL) (UNKNOWN) [Concomitant]
  5. REVLIMID [Suspect]
     Indication: MULTIPLE MYELOMA
     Dosage: 15 MG, 1 IN 1 D, PO    10 MG, 1 IN 1 D, PO
     Route: 048
     Dates: start: 20110301
  6. REVLIMID [Suspect]
     Indication: MULTIPLE MYELOMA
     Dosage: 15 MG, 1 IN 1 D, PO    10 MG, 1 IN 1 D, PO
     Route: 048
     Dates: start: 20090901
  7. CALCIUM (CALCIUM) (UNKNOWN) [Concomitant]

REACTIONS (2)
  - GRANULOCYTE COUNT [None]
  - PLATELET COUNT DECREASED [None]
